FAERS Safety Report 7490569-5 (Version None)
Quarter: 2011Q2

REPORT INFORMATION
  Report Type: 
  Country: None (occurrence: None)
  Receive Date: 20110519
  Receipt Date: 20110506
  Transmission Date: 20111010
  Serious: Yes (Other)
  Sender: FDA-Public Use
  Company Number: US-ELI_LILLY_AND_COMPANY-US201002000610

PATIENT
  Sex: Female

DRUGS (2)
  1. FORTEO [Suspect]
     Indication: OSTEOPOROSIS
     Dosage: 20 UG, DAILY (1/D)
  2. FORTEO [Suspect]
     Dosage: 20 UG, QD

REACTIONS (5)
  - DEHYDRATION [None]
  - URINARY TRACT INFECTION [None]
  - VOMITING [None]
  - GALLBLADDER DISORDER [None]
  - ABDOMINAL PAIN [None]
